FAERS Safety Report 11582412 (Version 1)
Quarter: 2015Q4

REPORT INFORMATION
  Report Type: Spontaneous
  Country: US (occurrence: US)
  Receive Date: 20151001
  Receipt Date: 20151001
  Transmission Date: 20160304
  Serious: No
  Sender: FDA-Public Use
  Company Number: US-ROCHE-669562

PATIENT
  Age: 44 Year
  Sex: Female
  Weight: 97.5 kg

DRUGS (11)
  1. LEXAPRO [Concomitant]
     Active Substance: ESCITALOPRAM OXALATE
     Indication: DEPRESSION
     Route: 065
  2. PEGASYS [Suspect]
     Active Substance: PEGINTERFERON ALFA-2A
     Indication: HEPATITIS C
     Dosage: PRE-FILLED SYRINGE
     Route: 058
     Dates: start: 20091116, end: 20100105
  3. BENAZEPRIL [Concomitant]
     Active Substance: BENAZEPRIL HYDROCHLORIDE
     Indication: HYPERTENSION
     Route: 065
  4. PEGASYS [Suspect]
     Active Substance: PEGINTERFERON ALFA-2A
     Dosage: PREFILLED SYRINGE
     Route: 058
  5. AMBIEN [Concomitant]
     Active Substance: ZOLPIDEM TARTRATE
     Route: 065
  6. COPEGUS [Suspect]
     Active Substance: RIBAVIRIN
     Indication: HEPATITIS C
     Route: 048
     Dates: start: 20091116, end: 20100105
  7. TRAMADOL. [Concomitant]
     Active Substance: TRAMADOL
     Indication: PAIN
     Dosage: AS NEEDED.
     Route: 065
  8. COPEGUS [Suspect]
     Active Substance: RIBAVIRIN
     Route: 048
  9. BENADRYL [Concomitant]
     Active Substance: DIPHENHYDRAMINE HYDROCHLORIDE
     Route: 065
  10. NAPROXEN. [Concomitant]
     Active Substance: NAPROXEN
     Indication: PAIN
     Dosage: AS NEEDED.
     Route: 065
  11. NEXIUM [Concomitant]
     Active Substance: ESOMEPRAZOLE MAGNESIUM
     Indication: GASTROOESOPHAGEAL REFLUX DISEASE
     Route: 065

REACTIONS (34)
  - Oral pain [Recovered/Resolved]
  - Toothache [Recovered/Resolved]
  - Chills [Unknown]
  - Vomiting [Not Recovered/Not Resolved]
  - Abdominal discomfort [Unknown]
  - Nail discolouration [Not Recovered/Not Resolved]
  - Pruritus [Not Recovered/Not Resolved]
  - Feeling cold [Unknown]
  - Depression [Not Recovered/Not Resolved]
  - Muscle tightness [Recovered/Resolved]
  - Nasal congestion [Unknown]
  - Cough [Not Recovered/Not Resolved]
  - Fatigue [Unknown]
  - Injection site reaction [Unknown]
  - Nausea [Not Recovered/Not Resolved]
  - Hyperhidrosis [Unknown]
  - Weight decreased [Unknown]
  - Injection site pain [Unknown]
  - White blood cell count decreased [Not Recovered/Not Resolved]
  - Rash [Not Recovered/Not Resolved]
  - Swelling face [Recovered/Resolved]
  - Upper-airway cough syndrome [Unknown]
  - Dyspnoea [Unknown]
  - Contusion [Unknown]
  - Anaemia [Not Recovered/Not Resolved]
  - Muscle tightness [Unknown]
  - Dizziness postural [Not Recovered/Not Resolved]
  - Injection site mass [Unknown]
  - Diarrhoea [Not Recovered/Not Resolved]
  - Injection site bruising [Unknown]
  - Confusional state [Unknown]
  - Decreased appetite [Not Recovered/Not Resolved]
  - Insomnia [Not Recovered/Not Resolved]
  - Skin ulcer [Not Recovered/Not Resolved]

NARRATIVE: CASE EVENT DATE: 20091116
